FAERS Safety Report 10015926 (Version 2)
Quarter: 2014Q1

REPORT INFORMATION
  Report Type: Spontaneous
  Country: US (occurrence: US)
  Receive Date: 20140317
  Receipt Date: 20140327
  Transmission Date: 20141002
  Serious: Yes (Hospitalization, Other)
  Sender: FDA-Public Use
  Company Number: US-JNJFOC-20140306465

PATIENT
  Age: 79 Year
  Sex: Male
  Weight: 63 kg

DRUGS (9)
  1. XARELTO [Suspect]
     Indication: ATRIAL FIBRILLATION
     Dosage: WITH DINNER
     Route: 048
     Dates: start: 20120813, end: 20130930
  2. XARELTO [Suspect]
     Indication: CEREBROVASCULAR ACCIDENT PROPHYLAXIS
     Dosage: WITH DINNER
     Route: 048
     Dates: start: 20120813, end: 20130930
  3. ASPIRIN [Suspect]
     Indication: PRODUCT USED FOR UNKNOWN INDICATION
     Dosage: 81 MG PO CHEW
     Route: 048
  4. CYANOCOBALAMIN [Concomitant]
     Dosage: INJECT 1 ML INTO THE MUSCLE EVERY 14 DAYS
     Route: 030
  5. FOLVITE [Concomitant]
     Route: 048
  6. ALBUTEROL [Concomitant]
     Dosage: 90 MCG/ACTUATION, 2 PUFFS EVERY 4 HOURS AS NEEDED
     Route: 048
  7. COLESTID [Concomitant]
     Dosage: TAKE 1 PACKET BY MOUTH 3 TIMES DAILY
     Route: 048
  8. BETAPACE [Concomitant]
     Route: 048
  9. SPIRIVA HANDIHALER [Concomitant]
     Dosage: 1 CAP INHALED BY MOUTH ONCE A DAY
     Route: 048

REACTIONS (3)
  - Intra-abdominal haematoma [Unknown]
  - Red blood cell count decreased [Unknown]
  - Chronic obstructive pulmonary disease [Unknown]
